FAERS Safety Report 24418818 (Version 3)
Quarter: 2025Q1

REPORT INFORMATION
  Report Type: Report from Study
  Country: US (occurrence: US)
  Receive Date: 20241009
  Receipt Date: 20250114
  Transmission Date: 20250408
  Serious: Yes (Hospitalization)
  Sender: ABBVIE
  Company Number: US-ABBVIE-5953456

PATIENT
  Age: 82 Year
  Sex: Male
  Weight: 72.574 kg

DRUGS (2)
  1. SKYRIZI [Suspect]
     Active Substance: RISANKIZUMAB-RZAA
     Indication: Crohn^s disease
     Route: 058
     Dates: start: 202409, end: 202410
  2. SKYRIZI [Suspect]
     Active Substance: RISANKIZUMAB-RZAA
     Indication: Crohn^s disease
     Dosage: FORM STRENGTH: 600MG?LAST ADMIN DATE- 2024
     Route: 042
     Dates: start: 202405

REACTIONS (2)
  - Gastrointestinal pain [Unknown]
  - Constipation [Unknown]

NARRATIVE: CASE EVENT DATE: 20240101
